FAERS Safety Report 25140613 (Version 1)
Quarter: 2025Q1

REPORT INFORMATION
  Report Type: Spontaneous
  Country: US (occurrence: None)
  Receive Date: 20250328
  Receipt Date: 20250328
  Transmission Date: 20250409
  Serious: Yes (Other)
  Sender: FDA-CTU
  Company Number: None

PATIENT
  Age: 61 Year
  Sex: Female
  Weight: 99 kg

DRUGS (9)
  1. PLATELET RICH PLASMA [Suspect]
     Active Substance: PLATELET RICH PLASMA
     Indication: Vertebral lesion
     Route: 008
     Dates: start: 20241001
  2. PLATELET RICH PLASMA [Suspect]
     Active Substance: PLATELET RICH PLASMA
     Indication: Scoliosis
  3. PLATELET RICH PLASMA [Suspect]
     Active Substance: PLATELET RICH PLASMA
     Indication: Musculoskeletal pain
  4. IBUPROFEN [Concomitant]
     Active Substance: IBUPROFEN
  5. VITAMINS [Concomitant]
     Active Substance: VITAMINS
  6. VITAMIN C [Concomitant]
     Active Substance: ASCORBIC ACID
  7. eye vitamin [Concomitant]
  8. hair and nails vitamin [Concomitant]
  9. FISH OIL [Concomitant]
     Active Substance: FISH OIL

REACTIONS (4)
  - Rash erythematous [None]
  - Pruritus [None]
  - Pain [None]
  - Hypoaesthesia [None]

NARRATIVE: CASE EVENT DATE: 20241001
